FAERS Safety Report 22652776 (Version 1)
Quarter: 2023Q2

REPORT INFORMATION
  Report Type: Spontaneous
  Country: US (occurrence: US)
  Receive Date: 20230629
  Receipt Date: 20230629
  Transmission Date: 20230722
  Serious: Yes (Other)
  Sender: FDA-Public Use
  Company Number: US-009507513-2306USA012696

PATIENT
  Sex: Male

DRUGS (1)
  1. KEYTRUDA [Suspect]
     Active Substance: PEMBROLIZUMAB
     Dosage: 200 MILLIGRAM, EVERY 21 DAYS (Q3W)
     Route: 042
     Dates: end: 20230124

REACTIONS (6)
  - Renal injury [Recovered/Resolved]
  - Rhinorrhoea [Recovered/Resolved]
  - Lower respiratory tract congestion [Recovered/Resolved]
  - Gastroenteritis viral [Recovered/Resolved]
  - Hypertension [Recovered/Resolved]
  - Rash [Recovered/Resolved]

NARRATIVE: CASE EVENT DATE: 20230124
